FAERS Safety Report 18579803 (Version 1)
Quarter: 2020Q4

REPORT INFORMATION
  Report Type: Spontaneous
  Country: US (occurrence: US)
  Receive Date: 20201204
  Receipt Date: 20201204
  Transmission Date: 20210114
  Serious: Yes (Other)
  Sender: FDA-Public Use
  Company Number: US-COLGATE PALMOLIVE COMPANY-20201202283

PATIENT
  Sex: Female

DRUGS (1)
  1. COLGATE TOTAL SF ADVANCED WHITENING [Suspect]
     Active Substance: STANNOUS FLUORIDE
     Dosage: UNKNOWN DOSE

REACTIONS (1)
  - Anaphylactic reaction [Unknown]
